FAERS Safety Report 5128761-7 (Version None)
Quarter: 2006Q4

REPORT INFORMATION
  Report Type: 
  Country: None (occurrence: None)
  Receive Date: 20061017
  Receipt Date: 20060504
  Transmission Date: 20070319
  Serious: Yes (Death, Hospitalization)
  Sender: FDA-Public Use
  Company Number: CG-MERCK-0605USA01683

PATIENT
  Age: 58 Year
  Sex: Male

DRUGS (1)
  1. STROMECTOL [Suspect]
     Route: 048
     Dates: start: 20060329, end: 20060329

REACTIONS (7)
  - ASTHENIA [None]
  - COMA [None]
  - FEEDING DISORDER [None]
  - HYPERTHERMIA [None]
  - MUTISM [None]
  - NERVOUS SYSTEM DISORDER [None]
  - SEPSIS [None]
